FAERS Safety Report 8847234 (Version 1)
Quarter: 2012Q4

REPORT INFORMATION
  Report Type: 
  Country: FR (occurrence: FR)
  Receive Date: 20121018
  Receipt Date: 20121018
  Transmission Date: 20130627
  Serious: Yes (Hospitalization, Other)
  Sender: FDA-Public Use
  Company Number: PHHY2012FR090905

PATIENT
  Age: 67 Year
  Sex: Female

DRUGS (4)
  1. FORADIL [Suspect]
     Indication: RESPIRATORY DISORDER
     Dates: start: 20120625
  2. ALLOPURINOL [Suspect]
     Indication: HYPERURICAEMIA
     Dates: start: 20120530
  3. NORFLOXACIN [Suspect]
     Indication: URINARY TRACT INFECTION
     Dates: start: 20120522
  4. NITROFURANTOIN [Suspect]
     Indication: URINARY TRACT INFECTION
     Dosage: 50 mg, UNK
     Dates: start: 20120612

REACTIONS (53)
  - Stevens-Johnson syndrome [Recovered/Resolved with Sequelae]
  - Body temperature increased [Unknown]
  - Drug reaction with eosinophilia and systemic symptoms [Recovered/Resolved with Sequelae]
  - Conjunctival disorder [Unknown]
  - Eosinophil count increased [Unknown]
  - Skin lesion [Recovered/Resolved]
  - Face oedema [Recovered/Resolved]
  - Mucosal erosion [Recovered/Resolved]
  - Pruritus [Recovered/Resolved]
  - Erythema [Recovered/Resolved]
  - Apoptosis [Unknown]
  - Overlap syndrome [Recovered/Resolved]
  - Lip ulceration [Unknown]
  - Tongue disorder [Unknown]
  - Mouth ulceration [Unknown]
  - Rash maculo-papular [Unknown]
  - Blister [Unknown]
  - Blood creatinine decreased [Unknown]
  - Hyperkeratosis [Unknown]
  - Blood urea increased [Unknown]
  - Blood calcium decreased [Unknown]
  - Blood potassium decreased [Unknown]
  - Blood phosphorus decreased [Unknown]
  - Glycosylated haemoglobin increased [Unknown]
  - Blood albumin decreased [Unknown]
  - Blood urine present [Unknown]
  - Proteinuria [Unknown]
  - Creatinine urine increased [Unknown]
  - Blood pressure abnormal [Unknown]
  - Gamma-glutamyltransferase increased [Unknown]
  - Hypergammaglobulinaemia [Unknown]
  - C-reactive protein increased [Unknown]
  - Blood uric acid increased [Unknown]
  - Cholelithiasis [Unknown]
  - Transferrin increased [Unknown]
  - Serum ferritin increased [Unknown]
  - Carbon dioxide abnormal [Unknown]
  - Urea urine increased [Unknown]
  - Escherichia infection [Unknown]
  - Bronchopneumopathy [Unknown]
  - Heart rate increased [Unknown]
  - Tachypnoea [Unknown]
  - Crepitations [Unknown]
  - Respiratory disorder [Unknown]
  - Staphylococcal bacteraemia [Unknown]
  - Human herpesvirus 6 infection [Unknown]
  - Cytomegalovirus test positive [Unknown]
  - Epstein-Barr virus test positive [Unknown]
  - Cardiomegaly [Unknown]
  - Increased bronchial secretion [Unknown]
  - Drug eruption [Unknown]
  - Heart rate decreased [Unknown]
  - Cardiac disorder [Unknown]
